FAERS Safety Report 18338329 (Version 1)
Quarter: 2020Q4

REPORT INFORMATION
  Report Type: Spontaneous
  Country: DE (occurrence: DE)
  Receive Date: 20201002
  Receipt Date: 20201002
  Transmission Date: 20210113
  Serious: Yes (Hospitalization)
  Sender: FDA-Public Use
  Company Number: DE-MYLANLABS-2020M1082591

PATIENT
  Age: 44 Year
  Sex: Male
  Weight: 65 kg

DRUGS (9)
  1. THIAMIN                            /00056102/ [Concomitant]
     Active Substance: THIAMINE HYDROCHLORIDE
     Dosage: 200 MILLIGRAM(200 MG, 1-0-0-0, TABLETTEN)
     Route: 048
  2. CLONAZEPAM. [Suspect]
     Active Substance: CLONAZEPAM
     Indication: PRODUCT USED FOR UNKNOWN INDICATION
     Dosage: 0.5 MILLIGRAM (0.5 MG, 1-0-1-0, TABLETTEN)
     Route: 048
  3. BUTYLSCOPOLAMIN [Concomitant]
     Dosage: 10 MILLIGRAM(10 MG, 1-1-1-0)
  4. RAMIPRIL. [Concomitant]
     Active Substance: RAMIPRIL
     Dosage: 5 MILLIGRAM(5 MG, 1-0-0-0, TABLETTEN)
     Route: 048
  5. METOPROLOL. [Concomitant]
     Active Substance: METOPROLOL
     Dosage: 47.5 MILLIGRAM(47.5 MG, 0.5-0-0-0, RETARD-TABLETTEN)
     Route: 048
  6. ZOPICLON [Concomitant]
     Active Substance: ZOPICLONE
     Dosage: 7.5 MILLIGRAM(7.5 MG, 0-0-1-0, TABLETTEN)
     Route: 048
  7. LEVETIRACETAM. [Suspect]
     Active Substance: LEVETIRACETAM
     Indication: PRODUCT USED FOR UNKNOWN INDICATION
     Dosage: 1000 MILLIGRAM (1000 MG, 1-1-1-0, TABLETTEN)
     Route: 048
  8. PANTOPRAZOL                        /01263201/ [Concomitant]
     Active Substance: PANTOPRAZOLE
     Dosage: 40 MILLIGRAM(40 MG, 1-0-0-0, TABLETTEN )
     Route: 048
  9. BUDESONIDE W/FORMOTEROL [Concomitant]
     Active Substance: BUDESONIDE\FORMOTEROL
     Dosage: UNK(200|6 ?G, 2-0-0-0, DOSIERAEROSOL)
     Route: 055

REACTIONS (2)
  - Condition aggravated [Unknown]
  - Abdominal pain [Unknown]
